FAERS Safety Report 26144214 (Version 1)
Quarter: 2025Q4

REPORT INFORMATION
  Report Type: Spontaneous
  Country: EU (occurrence: EU)
  Receive Date: 20251211
  Receipt Date: 20251211
  Transmission Date: 20260118
  Serious: Yes (Other)
  Sender: RANBAXY
  Company Number: EU-AFSSAPS-AN2025001131

PATIENT
  Age: 29 Year
  Sex: Female

DRUGS (13)
  1. GABAPENTIN [Suspect]
     Active Substance: GABAPENTIN
     Indication: Trigeminal neuralgia
     Dosage: 1200 MILLIGRAM, DAILY
     Route: 048
     Dates: end: 20250814
  2. GABAPENTIN [Suspect]
     Active Substance: GABAPENTIN
     Dosage: 1500 MILLIGRAM, DAILY
     Route: 048
  3. OLANZAPINE [Suspect]
     Active Substance: OLANZAPINE
     Indication: Psychotic disorder
     Dosage: 10 MILLIGRAM, DAILY
     Route: 048
     Dates: start: 20250603, end: 20250605
  4. OLANZAPINE [Suspect]
     Active Substance: OLANZAPINE
     Dosage: 15 MILLIGRAM, DAILY
     Route: 048
     Dates: start: 20250606, end: 20250608
  5. OLANZAPINE [Suspect]
     Active Substance: OLANZAPINE
     Dosage: 20 MILLIGRAM, DAILY
     Route: 048
     Dates: start: 20250609, end: 20250613
  6. OLANZAPINE [Suspect]
     Active Substance: OLANZAPINE
     Dosage: 25 MILLIGRAM, DAILY
     Route: 048
     Dates: start: 20250614, end: 20250808
  7. OLANZAPINE [Suspect]
     Active Substance: OLANZAPINE
     Dosage: 20 MILLIGRAM, DAILY
     Route: 048
     Dates: end: 20250819
  8. OLANZAPINE [Suspect]
     Active Substance: OLANZAPINE
     Dosage: 15 MILLIGRAM, DAILY
     Route: 048
     Dates: end: 20250828
  9. PAROXETINE HYDROCHLORIDE [Suspect]
     Active Substance: PAROXETINE HYDROCHLORIDE
     Indication: Psychotic disorder
     Dosage: 20 MILLIGRAM, DAILY
     Route: 048
     Dates: start: 20250716
  10. ZOLPIDEM [Concomitant]
     Active Substance: ZOLPIDEM TARTRATE
     Indication: Product used for unknown indication
     Dosage: 10 MILLIGRAM, DAILY
     Route: 048
     Dates: start: 20250703
  11. LORAZEPAM [Concomitant]
     Active Substance: LORAZEPAM
     Indication: Product used for unknown indication
     Dosage: 3 MILLIGRAM, DAILY
     Route: 048
     Dates: start: 20250607, end: 20250619
  12. LORAZEPAM [Concomitant]
     Active Substance: LORAZEPAM
     Dosage: 2 MILLIGRAM, DAILY
     Route: 048
     Dates: start: 20250620, end: 20250715
  13. LORAZEPAM [Concomitant]
     Active Substance: LORAZEPAM
     Dosage: 1.5 MILLIGRAM, DAILY
     Route: 048
     Dates: start: 20250716

REACTIONS (1)
  - Seizure [Recovered/Resolved]

NARRATIVE: CASE EVENT DATE: 20250807
